FAERS Safety Report 9479355 (Version 1)
Quarter: 2013Q3

REPORT INFORMATION
  Report Type: Spontaneous
  Country: US (occurrence: US)
  Receive Date: 20130827
  Receipt Date: 20130827
  Transmission Date: 20140515
  Serious: No
  Sender: FDA-Public Use
  Company Number: US-PFIZER INC-2013244268

PATIENT
  Sex: Female

DRUGS (13)
  1. NEURONTIN [Suspect]
     Dosage: UNK
  2. AMLODIPINE BESILATE [Suspect]
     Dosage: UNK
  3. ATENOLOL [Suspect]
     Dosage: UNK
  4. HYDROCORTISONE [Suspect]
     Dosage: UNK
  5. LIPITOR [Suspect]
     Dosage: UNK
  6. ASPIRIN [Suspect]
     Dosage: UNK
  7. BACLOFEN [Suspect]
     Dosage: UNK
  8. BENICAR [Suspect]
     Dosage: UNK
  9. CARBAMAZEPINE [Suspect]
     Dosage: UNK
  10. JANUVIA [Suspect]
     Dosage: UNK
  11. LEVEMIR [Suspect]
     Dosage: UNK
  12. MECLIZINE [Suspect]
     Dosage: UNK
  13. METFORMIN [Suspect]
     Dosage: UNK

REACTIONS (1)
  - Drug hypersensitivity [Unknown]
